FAERS Safety Report 16646025 (Version 5)
Quarter: 2022Q2

REPORT INFORMATION
  Report Type: Report from Study
  Country: JP (occurrence: JP)
  Receive Date: 20190730
  Receipt Date: 20220429
  Transmission Date: 20220721
  Serious: Yes (Hospitalization)
  Sender: FDA-Public Use
  Company Number: JP-ABBVIE-17P-087-2057100-00

PATIENT
  Age: 60 Year
  Sex: Female
  Weight: 55 kg

DRUGS (41)
  1. CARBIDOPA\LEVODOPA [Suspect]
     Active Substance: CARBIDOPA\LEVODOPA
     Indication: Parkinson^s disease
     Dosage: MD: 2.4 ML, CD: 2.0 ML/HR X 16 HR
     Route: 050
     Dates: start: 20170615, end: 20170615
  2. CARBIDOPA\LEVODOPA [Suspect]
     Active Substance: CARBIDOPA\LEVODOPA
     Dosage: MD: 2.4 ML, CD: 2.3 ML/HR X 16 HR
     Route: 050
     Dates: start: 20170616, end: 20170616
  3. CARBIDOPA\LEVODOPA [Suspect]
     Active Substance: CARBIDOPA\LEVODOPA
     Dosage: MD: 2.4 ML, CD: 2.6 ML/HR X 16 HR
     Route: 050
     Dates: start: 20170616, end: 20170616
  4. CARBIDOPA\LEVODOPA [Suspect]
     Active Substance: CARBIDOPA\LEVODOPA
     Dosage: MD: 3.5 ML, CD: 2.6 ML/HR X 16 HR
     Route: 050
     Dates: start: 20170616, end: 20170616
  5. CARBIDOPA\LEVODOPA [Suspect]
     Active Substance: CARBIDOPA\LEVODOPA
     Dosage: MD: 3.5 ML, CD: 2.9 ML/HR X 16 HR, ED: 0.5 ML/UNIT X1
     Route: 050
     Dates: start: 20170616, end: 20170619
  6. CARBIDOPA\LEVODOPA [Suspect]
     Active Substance: CARBIDOPA\LEVODOPA
     Dosage: MD: 3.5 ML, CD: 3.2 ML/HR X 16 HR, ED: 0.5 ML/UNIT X1
     Route: 050
     Dates: start: 20170619, end: 20170620
  7. CARBIDOPA\LEVODOPA [Suspect]
     Active Substance: CARBIDOPA\LEVODOPA
     Dosage: MD: 3.5 ML, CD: 3.2 ML/HR X 16 HR, ED: 1.0 ML/UNIT X1
     Route: 050
     Dates: start: 20170620, end: 20170622
  8. CARBIDOPA\LEVODOPA [Suspect]
     Active Substance: CARBIDOPA\LEVODOPA
     Dosage: MD: 4.5 ML, CD: 3.2 ML/HR X 16 HR, ED: 1.0 ML/UNIT X1
     Route: 050
     Dates: start: 20170622, end: 20170622
  9. CARBIDOPA\LEVODOPA [Suspect]
     Active Substance: CARBIDOPA\LEVODOPA
     Dosage: MD: 4.5 ML, CD: 3.2 ML/HR X 16 HR, ED: 1.5 ML/UNIT X1
     Route: 050
     Dates: start: 20170622, end: 20170622
  10. CARBIDOPA\LEVODOPA [Suspect]
     Active Substance: CARBIDOPA\LEVODOPA
     Dosage: MD: 7.5 ML, CD: 3.2 ML/HR X 16 HR, ED: 1.5 ML/UNIT X1
     Route: 050
     Dates: start: 20170622, end: 20170622
  11. CARBIDOPA\LEVODOPA [Suspect]
     Active Substance: CARBIDOPA\LEVODOPA
     Dosage: MD: 7.5 ML, CD: 3.0 ML/HR X 16 HR, ED: 1.5 ML/UNIT X2
     Route: 050
     Dates: start: 20170622, end: 20170626
  12. CARBIDOPA\LEVODOPA [Suspect]
     Active Substance: CARBIDOPA\LEVODOPA
     Dosage: MD: 7.5 ML, CD: 3.1 ML/HR X 16 HR, ED: 1.5 ML/UNIT X2
     Route: 050
     Dates: start: 20170626, end: 20170829
  13. CARBIDOPA\LEVODOPA [Suspect]
     Active Substance: CARBIDOPA\LEVODOPA
     Dosage: MD: 7.5 ML, CD: 3.2 ML/HR X 16 HR, ED: 1.5 ML/UNIT X2
     Route: 050
     Dates: start: 20170829, end: 20170911
  14. CARBIDOPA\LEVODOPA [Suspect]
     Active Substance: CARBIDOPA\LEVODOPA
     Dosage: MD: 7.5 ML, CD: 3.1 ML/HR X 16 HR, ED: 1.5 ML/UNIT X2
     Route: 050
     Dates: start: 20170911
  15. CARBIDOPA\LEVODOPA [Suspect]
     Active Substance: CARBIDOPA\LEVODOPA
     Dosage: MD 7.5 ML CD 3.1 ML/HR X 16 HOURS ED 1.5 ML X 2 TIMES
     Route: 050
     Dates: start: 20170811, end: 20180227
  16. CARBIDOPA\LEVODOPA [Suspect]
     Active Substance: CARBIDOPA\LEVODOPA
     Dosage: MD 7.5 ML CD 3.2 ML/HR X 16 HOURS ED 1.5 ML X 3 TIMES
     Route: 050
     Dates: start: 20180227, end: 20180303
  17. CARBIDOPA\LEVODOPA [Suspect]
     Active Substance: CARBIDOPA\LEVODOPA
     Dosage: MD 7.5 ML CD 3.3 ML/HR X 16 HOURS ED 1.5 ML X 3 TIMES
     Route: 050
     Dates: start: 20180303, end: 20180327
  18. CARBIDOPA\LEVODOPA [Suspect]
     Active Substance: CARBIDOPA\LEVODOPA
     Dosage: MD 7.5 ML CD 3.5 ML/HR X 16 HOURS ED 1.5 ML X 3 TIMES
     Route: 050
     Dates: start: 20180327, end: 20180522
  19. CARBIDOPA\LEVODOPA [Suspect]
     Active Substance: CARBIDOPA\LEVODOPA
     Dosage: MD 7.5 ML CD 3.4 ML/HR X 16 HOURS ED 1.5 ML X 3 TIMES
     Route: 050
     Dates: start: 20180522, end: 20180605
  20. CARBIDOPA\LEVODOPA [Suspect]
     Active Substance: CARBIDOPA\LEVODOPA
     Dosage: MD 7.5 ML?CD 3.3 ML/HR X 16 HOURS?ED 1.5 ML X 3 TIMES
     Route: 050
     Dates: start: 20180605, end: 20180619
  21. CARBIDOPA\LEVODOPA [Suspect]
     Active Substance: CARBIDOPA\LEVODOPA
     Dosage: MD 7.5 ML CD 3.2 ML/HR X 16 HOURS ED 1.5 ML X 3 TIMES
     Route: 050
     Dates: start: 20180619, end: 20180724
  22. CARBIDOPA\LEVODOPA [Suspect]
     Active Substance: CARBIDOPA\LEVODOPA
     Dosage: MD 7.5 ML CD 3.1 ML/HRS X 16 HRS ED 1.5 ML/UNIT X 2 TIMES
     Route: 050
     Dates: start: 20180724, end: 20180918
  23. CARBIDOPA\LEVODOPA [Suspect]
     Active Substance: CARBIDOPA\LEVODOPA
     Dosage: MD: 7.5 ML/ CD: 3.0 ML/HR X 16 HRS/ ED: 1.5 ML/UNIT X 2 TIMES
     Route: 050
     Dates: start: 20180919
  24. ROTIGOTINE [Concomitant]
     Active Substance: ROTIGOTINE
     Indication: Parkinson^s disease
     Route: 062
     Dates: end: 20170629
  25. ROTIGOTINE [Concomitant]
     Active Substance: ROTIGOTINE
     Dates: start: 20170629, end: 20170706
  26. ROTIGOTINE [Concomitant]
     Active Substance: ROTIGOTINE
     Dates: start: 20170706, end: 20170815
  27. ROTIGOTINE [Concomitant]
     Active Substance: ROTIGOTINE
     Dates: start: 20170816
  28. LANSOPRAZOLE [Concomitant]
     Active Substance: LANSOPRAZOLE
     Indication: Product used for unknown indication
     Route: 048
     Dates: end: 20181211
  29. MIRTAZAPINE [Concomitant]
     Active Substance: MIRTAZAPINE
     Indication: Product used for unknown indication
     Route: 048
     Dates: end: 20170705
  30. MIRTAZAPINE [Concomitant]
     Active Substance: MIRTAZAPINE
     Dates: start: 20170706, end: 20170731
  31. QUETIAPINE FUMARATE [Concomitant]
     Active Substance: QUETIAPINE FUMARATE
     Indication: Product used for unknown indication
     Route: 048
     Dates: start: 20171205, end: 20180924
  32. QUETIAPINE FUMARATE [Concomitant]
     Active Substance: QUETIAPINE FUMARATE
     Dates: start: 20170713, end: 20170719
  33. QUETIAPINE FUMARATE [Concomitant]
     Active Substance: QUETIAPINE FUMARATE
     Dates: start: 20170720, end: 20170724
  34. CLONAZEPAM [Concomitant]
     Active Substance: CLONAZEPAM
     Indication: Product used for unknown indication
     Route: 048
  35. SENNA LEAF/POD [Concomitant]
     Indication: Product used for unknown indication
     Route: 048
  36. SUVOREXANT [Concomitant]
     Active Substance: SUVOREXANT
     Indication: Product used for unknown indication
     Route: 048
     Dates: start: 20170912
  37. METHYL SALICYLATE [Concomitant]
     Active Substance: METHYL SALICYLATE
     Indication: Product used for unknown indication
     Route: 062
     Dates: start: 20171024, end: 20171127
  38. AMANTADINE HYDROCHLORIDE [Concomitant]
     Active Substance: AMANTADINE HYDROCHLORIDE
     Indication: Parkinson^s disease
     Route: 048
     Dates: start: 20190227, end: 20190305
  39. AMANTADINE HYDROCHLORIDE [Concomitant]
     Active Substance: AMANTADINE HYDROCHLORIDE
     Indication: Dyskinesia
     Route: 048
     Dates: start: 20190306
  40. AMANTADINE HYDROCHLORIDE [Concomitant]
     Active Substance: AMANTADINE HYDROCHLORIDE
     Indication: Akinesia
  41. PYRIDOXAL PHOSPHATE HYDRATE [Concomitant]
     Indication: Prophylaxis

REACTIONS (16)
  - Posture abnormal [Recovering/Resolving]
  - Stoma site infection [Not Recovered/Not Resolved]
  - Hypercholesterolaemia [Not Recovered/Not Resolved]
  - Nocturia [Not Recovered/Not Resolved]
  - Vitamin B6 deficiency [Recovered/Resolved]
  - Medical device entrapment [Recovered/Resolved]
  - Posture abnormal [Unknown]
  - Dyskinesia [Not Recovered/Not Resolved]
  - Erythema [Recovering/Resolving]
  - Decreased appetite [Recovered/Resolved]
  - Stoma site erythema [Recovered/Resolved]
  - Stoma site pain [Recovering/Resolving]
  - Stoma site erythema [Recovered/Resolved]
  - Dyskinesia [Recovered/Resolved]
  - Stoma site hypergranulation [Recovering/Resolving]
  - Insomnia [Not Recovered/Not Resolved]

NARRATIVE: CASE EVENT DATE: 20170622
